FAERS Safety Report 17671703 (Version 1)
Quarter: 2020Q2

REPORT INFORMATION
  Report Type: Spontaneous
  Country: US (occurrence: US)
  Receive Date: 20200415
  Receipt Date: 20200415
  Transmission Date: 20200713
  Serious: No
  Sender: FDA-Public Use
  Company Number: US-ALKERMES INC.-ALK-2019-002588

PATIENT
  Age: 63 Year
  Sex: Male
  Weight: 136.5 kg

DRUGS (1)
  1. VIVITROL [Suspect]
     Active Substance: NALTREXONE
     Indication: ALCOHOLISM
     Dosage: 380 MG, QMO
     Route: 030
     Dates: start: 20190508

REACTIONS (11)
  - Thinking abnormal [Recovering/Resolving]
  - Dry mouth [Recovering/Resolving]
  - Disorientation [Recovering/Resolving]
  - Nasopharyngitis [Recovering/Resolving]
  - Feeling abnormal [Recovering/Resolving]
  - Insomnia [Recovering/Resolving]
  - Cough [Recovering/Resolving]
  - Feeling cold [Recovering/Resolving]
  - Fatigue [Recovering/Resolving]
  - Abdominal pain upper [Recovering/Resolving]
  - Negative thoughts [Recovering/Resolving]

NARRATIVE: CASE EVENT DATE: 201905
